FAERS Safety Report 14902352 (Version 4)
Quarter: 2018Q2

REPORT INFORMATION
  Report Type: Report from Study
  Country: DE (occurrence: DE)
  Receive Date: 20180516
  Receipt Date: 20180620
  Transmission Date: 20180711
  Serious: Yes (Hospitalization)
  Sender: FDA-Public Use
  Company Number: DE-EMD SERONO-9026105

PATIENT
  Age: 52 Year
  Sex: Male
  Weight: 70 kg

DRUGS (1)
  1. REBIF [Suspect]
     Active Substance: INTERFERON BETA-1A
     Indication: MULTIPLE SCLEROSIS
     Route: 058
     Dates: start: 2013, end: 20180416

REACTIONS (3)
  - Injection site necrosis [Unknown]
  - Wound [Not Recovered/Not Resolved]
  - Injection site abscess [Not Recovered/Not Resolved]

NARRATIVE: CASE EVENT DATE: 201805
